FAERS Safety Report 18323258 (Version 1)
Quarter: 2020Q3

REPORT INFORMATION
  Report Type: Spontaneous
  Country: US (occurrence: US)
  Receive Date: 20200928
  Receipt Date: 20200928
  Transmission Date: 20201103
  Serious: Yes (Hospitalization)
  Sender: FDA-Public Use
  Company Number: None

PATIENT
  Age: 86 Year
  Sex: Male

DRUGS (26)
  1. MUPIROCIN. [Concomitant]
     Active Substance: MUPIROCIN
  2. OMEPRAZOLE. [Concomitant]
     Active Substance: OMEPRAZOLE
  3. ALBUTEROL NEB [Concomitant]
     Active Substance: ALBUTEROL
  4. AMOX/K CLAV [Concomitant]
     Active Substance: AMOXICILLIN\CLAVULANATE POTASSIUM
  5. CEPHALEXIN. [Concomitant]
     Active Substance: CEPHALEXIN
  6. LISINOPRIL. [Concomitant]
     Active Substance: LISINOPRIL
  7. METOPROLOL. [Concomitant]
     Active Substance: METOPROLOL
  8. SODIUM CHLOR NEB 7% [Concomitant]
  9. ELIQUIS [Concomitant]
     Active Substance: APIXABAN
  10. TOBRAMYCIN 300MG/5ML 20ML =4 NEB [Suspect]
     Active Substance: TOBRAMYCIN
     Indication: BRONCHIECTASIS
     Dosage: ROUTE^ INH ? 28D ON ? 28 D OFF
     Route: 055
     Dates: start: 20161228
  11. ALFUZOSIN [Concomitant]
     Active Substance: ALFUZOSIN
  12. FUROSEMIDE. [Concomitant]
     Active Substance: FUROSEMIDE
  13. SERTRALINE [Concomitant]
     Active Substance: SERTRALINE HYDROCHLORIDE
  14. TRAZODONE [Concomitant]
     Active Substance: TRAZODONE HYDROCHLORIDE
  15. ISOSORB MONO [Concomitant]
     Active Substance: ISOSORBIDE MONONITRATE
  16. LANTUS [Concomitant]
     Active Substance: INSULIN GLARGINE
  17. LEVOFLOXACIN. [Concomitant]
     Active Substance: LEVOFLOXACIN
  18. NITROGLYCERIN. [Concomitant]
     Active Substance: NITROGLYCERIN
  19. SPIRIVA [Concomitant]
     Active Substance: TIOTROPIUM BROMIDE MONOHYDRATE
  20. WIXELA INHUB [Concomitant]
     Active Substance: FLUTICASONE PROPIONATE\SALMETEROL XINAFOATE
  21. BENZONATATE. [Concomitant]
     Active Substance: BENZONATATE
  22. HUMALOG [Concomitant]
     Active Substance: INSULIN LISPRO
  23. IPRATROPIUM [Concomitant]
     Active Substance: IPRATROPIUM
  24. METOPROL SUC ER [Concomitant]
  25. ATORVASTATIN [Concomitant]
     Active Substance: ATORVASTATIN
  26. FLUTICASONE. [Concomitant]
     Active Substance: FLUTICASONE

REACTIONS (4)
  - Cough [None]
  - Diarrhoea [None]
  - Productive cough [None]
  - Thrombosis [None]

NARRATIVE: CASE EVENT DATE: 20200921
